FAERS Safety Report 9205736 (Version 1)
Quarter: 2013Q2

REPORT INFORMATION
  Report Type: Other
  Country: FR (occurrence: FR)
  Receive Date: 20130403
  Receipt Date: 20130403
  Transmission Date: 20140414
  Serious: Yes (Hospitalization)
  Sender: FDA-Public Use
  Company Number: FR-SHIRE-ALL1-2013-01966

PATIENT
  Age: 80 Year
  Sex: Male

DRUGS (5)
  1. XAGRID [Suspect]
     Indication: ESSENTIAL THROMBOCYTHAEMIA
     Dosage: UNK UNK, OTHER (2-5 CAPSULES PER DAY)
     Route: 048
     Dates: start: 201101, end: 20121217
  2. XAGRID [Suspect]
     Dosage: 3 CAPSULES PER DAY; 1X/DAY
     Route: 048
     Dates: start: 20121218, end: 20121222
  3. XAGRID [Suspect]
     Dosage: 2 CAPSULES PER DAY; 1X/DAY
     Route: 048
     Dates: start: 20121223, end: 20121227
  4. HYDREA [Concomitant]
     Indication: ESSENTIAL THROMBOCYTHAEMIA
     Dosage: UNK, OTHER (1-3 CAPSULES PER DAY)
     Route: 065
     Dates: start: 2007, end: 20121218
  5. HYDREA [Concomitant]
     Dosage: UNK, OTHER (2 CAPSULES PER DAY, 2 AND 3 CAPSULES PER DAY)
     Route: 065
     Dates: start: 20121223

REACTIONS (3)
  - Arteriosclerosis coronary artery [Recovered/Resolved]
  - Loss of consciousness [Recovered/Resolved]
  - Syncope [Recovered/Resolved]
